FAERS Safety Report 18107618 (Version 3)
Quarter: 2020Q3

REPORT INFORMATION
  Report Type: Spontaneous
  Country: TR (occurrence: TR)
  Receive Date: 20200804
  Receipt Date: 20200825
  Transmission Date: 20201103
  Serious: Yes (Hospitalization, Other)
  Sender: FDA-Public Use
  Company Number: TR-PFIZER INC-2020287111

PATIENT
  Age: 35 Year
  Sex: Female

DRUGS (1)
  1. CHAMPIX [Suspect]
     Active Substance: VARENICLINE TARTRATE
     Dosage: UNK
     Dates: start: 2020, end: 202007

REACTIONS (16)
  - Hypoaesthesia [Unknown]
  - Vertigo [Not Recovered/Not Resolved]
  - Somnolence [Unknown]
  - Enteritis infectious [Recovered/Resolved]
  - Fatigue [Recovered/Resolved]
  - Product complaint [Unknown]
  - Asthenia [Recovered/Resolved]
  - Nervousness [Recovered/Resolved]
  - Poor quality product administered [Unknown]
  - Facial asymmetry [Recovered/Resolved]
  - Slow speech [Recovered/Resolved]
  - Paraesthesia [Unknown]
  - Balance disorder [Recovered/Resolved]
  - Circadian rhythm sleep disorder [Not Recovered/Not Resolved]
  - Anaesthesia [Unknown]
  - Nausea [Recovered/Resolved]

NARRATIVE: CASE EVENT DATE: 2020
